FAERS Safety Report 17550027 (Version 1)
Quarter: 2020Q1

REPORT INFORMATION
  Report Type: Report from Study
  Country: DE (occurrence: DE)
  Receive Date: 20200317
  Receipt Date: 20200317
  Transmission Date: 20200409
  Serious: Yes (Death, Other)
  Sender: FDA-Public Use
  Company Number: DE-MYLANLABS-2020M1027045

PATIENT
  Sex: Male

DRUGS (34)
  1. AMIODARON                          /00133101/ [Concomitant]
     Active Substance: AMIODARONE
     Indication: CARDIOVASCULAR DISORDER
  2. MACROGOL [Concomitant]
     Active Substance: POLYETHYLENE GLYCOLS
     Indication: PRODUCT USED FOR UNKNOWN INDICATION
     Dosage: 1 DOSAGE FORM
     Route: 065
  3. NIVOLUMAB [Suspect]
     Active Substance: NIVOLUMAB
     Dosage: 250 MILLIGRAM, Q2WK
     Route: 042
     Dates: start: 20190218
  4. XARELTO [Concomitant]
     Active Substance: RIVAROXABAN
     Indication: CEREBROVASCULAR DISORDER
     Dosage: 20 MILLIGRAM, QD
     Route: 065
  5. CETUXIMAB. [Suspect]
     Active Substance: CETUXIMAB
     Indication: PRODUCT USED FOR UNKNOWN INDICATION
     Dosage: 678 MICROGRAM
     Route: 065
     Dates: start: 20190506, end: 20190506
  6. FENISTIL [Concomitant]
     Active Substance: DIMETHINDENE
     Dosage: 1 DOSAGE FORM
     Dates: start: 20190506
  7. PANTOZOL [Concomitant]
     Active Substance: PANTOPRAZOLE SODIUM
     Indication: PROPHYLAXIS
     Dosage: 20 MILLIGRAM, QD
     Dates: start: 201905
  8. FENISTIL [Concomitant]
     Active Substance: DIMETHINDENE
     Indication: PROPHYLAXIS
     Dosage: 4 MILLIGRAM, QD
     Route: 065
     Dates: start: 20190311, end: 20190311
  9. FENISTIL [Concomitant]
     Active Substance: DIMETHINDENE
     Dosage: 4 MILLIGRAM, QD
     Route: 065
     Dates: start: 20190218, end: 20190218
  10. TARGIN [Concomitant]
     Active Substance: NALOXONE HYDROCHLORIDE\OXYCODONE HYDROCHLORIDE
     Indication: PRODUCT USED FOR UNKNOWN INDICATION
     Dosage: 1 DOSAGE FORM, TID
     Route: 065
     Dates: start: 201904
  11. TARGIN [Concomitant]
     Active Substance: NALOXONE HYDROCHLORIDE\OXYCODONE HYDROCHLORIDE
     Dosage: 1 DOSAGE FORM, BID
     Route: 065
     Dates: start: 201904
  12. AMIODARON                          /00133101/ [Concomitant]
     Active Substance: AMIODARONE
     Indication: CEREBROVASCULAR DISORDER
     Dosage: 200 MILLIGRAM
     Route: 065
  13. PARACETAMOL [Concomitant]
     Active Substance: ACETAMINOPHEN
     Dosage: 1000 MILLIGRAM, QD
     Route: 065
     Dates: start: 20190218, end: 20190218
  14. XARELTO [Concomitant]
     Active Substance: RIVAROXABAN
     Indication: CARDIOVASCULAR DISORDER
  15. ARCOXIA [Concomitant]
     Active Substance: ETORICOXIB
     Indication: PRODUCT USED FOR UNKNOWN INDICATION
     Dosage: 90 MILLIGRAM, QD
     Route: 065
     Dates: end: 201904
  16. CLINDAMYCIN. [Concomitant]
     Active Substance: CLINDAMYCIN
     Indication: PROPHYLAXIS
     Dosage: 1 DOSAGE FORM
     Route: 042
     Dates: start: 20190510, end: 20190512
  17. RAMIPRIL. [Concomitant]
     Active Substance: RAMIPRIL
     Indication: CEREBROVASCULAR DISORDER
     Dosage: 2.5 MILLIGRAM, BID
     Route: 065
     Dates: end: 20190513
  18. RAMIPRIL. [Concomitant]
     Active Substance: RAMIPRIL
     Indication: CARDIOVASCULAR DISORDER
  19. CISPLATIN. [Suspect]
     Active Substance: CISPLATIN
     Indication: PRODUCT USED FOR UNKNOWN INDICATION
     Dosage: UNK
     Route: 065
  20. FENISTIL [Concomitant]
     Active Substance: DIMETHINDENE
     Dosage: 4 MILLIGRAM, QD
     Route: 065
     Dates: start: 20190225, end: 20190225
  21. KABIVEN [Concomitant]
     Active Substance: AMINO ACIDS\ANHYDROUS DEXTROSE\CALCIUM CHLORIDE\MAGNESIUM SULFATE HEPTAHYDRATE\POTASSIUM CHLORIDE\SODIUM ACETATE\SODIUM GLYCEROPHOSPHATE ANHYDROUS\SOYBEAN OIL
     Indication: MALIGNANT NEOPLASM PROGRESSION
     Dosage: 1 DOSAGE FORM
     Route: 065
     Dates: start: 20190514
  22. KABIVEN [Concomitant]
     Active Substance: AMINO ACIDS\ANHYDROUS DEXTROSE\CALCIUM CHLORIDE\MAGNESIUM SULFATE HEPTAHYDRATE\POTASSIUM CHLORIDE\SODIUM ACETATE\SODIUM GLYCEROPHOSPHATE ANHYDROUS\SOYBEAN OIL
     Dosage: 1 DOSAGE FORM
     Route: 065
     Dates: start: 20190506, end: 20190513
  23. FLUOROURACIL. [Suspect]
     Active Substance: FLUOROURACIL
     Indication: PRODUCT USED FOR UNKNOWN INDICATION
     Dosage: UNK
     Route: 065
  24. NIVOLUMAB [Suspect]
     Active Substance: NIVOLUMAB
     Dosage: 3 MILLIGRAM/KILOGRAM, Q2WK
     Route: 042
  25. FREKAVIT FETTLOESLICH [Concomitant]
     Active Substance: .ALPHA.-TOCOPHEROL\ERGOCALCIFEROL\PHYTONADIONE\VITAMIN A
     Indication: MALIGNANT NEOPLASM PROGRESSION
     Dosage: 1 DOSAGE FORM, QOD
     Route: 065
     Dates: start: 20190513
  26. OXYCODON [Concomitant]
     Active Substance: OXYCODONE
     Indication: PRODUCT USED FOR UNKNOWN INDICATION
     Dosage: 1 DOSAGE FORM
     Route: 065
     Dates: start: 20190511
  27. TILIDIN [Concomitant]
     Active Substance: NALOXONE HYDROCHLORIDE\TILIDINE HYDROCHLORIDE
     Indication: PRODUCT USED FOR UNKNOWN INDICATION
     Dosage: 100 MILLIGRAM, BID
     Route: 065
     Dates: end: 201904
  28. NIVOLUMAB [Suspect]
     Active Substance: NIVOLUMAB
     Indication: SQUAMOUS CELL CARCINOMA OF HEAD AND NECK
     Dosage: 240 MILLIGRAM, Q2WK
     Route: 065
     Dates: start: 20190218
  29. RETINOL PALMITATE [Concomitant]
     Active Substance: VITAMIN A PALMITATE
     Indication: PRODUCT USED FOR UNKNOWN INDICATION
     Dosage: 1 DOSAGE FORM, EVERY 2 DAYS
     Route: 065
     Dates: start: 20190513
  30. BISOPROLOL [Concomitant]
     Active Substance: BISOPROLOL
     Indication: CEREBROVASCULAR DISORDER
     Dosage: 2.5 MILLIGRAM, BID
     Route: 065
     Dates: end: 201904
  31. BISOPROLOL [Concomitant]
     Active Substance: BISOPROLOL
     Indication: CARDIOVASCULAR DISORDER
     Dosage: 5 MILLIGRAM, BID
     Route: 065
     Dates: start: 201904, end: 20190506
  32. IBUPROFEN. [Concomitant]
     Active Substance: IBUPROFEN
     Indication: PRODUCT USED FOR UNKNOWN INDICATION
     Dosage: 600 MILLIGRAM, TID
     Route: 065
     Dates: start: 201904, end: 20190505
  33. PANTOZOL [Concomitant]
     Active Substance: PANTOPRAZOLE SODIUM
     Indication: PROPHYLAXIS
     Dosage: 20 MILLIGRAM, QD
     Route: 065
     Dates: start: 20190218, end: 20190218
  34. PARACETAMOL [Concomitant]
     Active Substance: ACETAMINOPHEN
     Indication: PROPHYLAXIS
     Dosage: 1000 MILLIGRAM, QD
     Route: 065
     Dates: start: 20190225, end: 20190225

REACTIONS (13)
  - Rash [Recovered/Resolved]
  - Asthenia [Recovered/Resolved]
  - Tumour pseudoprogression [Not Recovered/Not Resolved]
  - Chills [Recovered/Resolved]
  - Malignant neoplasm progression [Fatal]
  - Spinal pain [Not Recovered/Not Resolved]
  - Pleural effusion [Not Recovered/Not Resolved]
  - Blood sodium decreased [Unknown]
  - Pathological fracture [Not Recovered/Not Resolved]
  - Clavicle fracture [Not Recovered/Not Resolved]
  - Blood creatinine increased [Unknown]
  - Blood pressure increased [Recovered/Resolved]
  - Constipation [Not Recovered/Not Resolved]

NARRATIVE: CASE EVENT DATE: 201903
